FAERS Safety Report 5951104-3 (Version None)
Quarter: 2008Q4

REPORT INFORMATION
  Report Type: 
  Country: None (occurrence: None)
  Receive Date: 20081112
  Receipt Date: 20081112
  Transmission Date: 20090506
  Serious: No
  Sender: FDA-Public Use
  Company Number: None

PATIENT
  Age: 41 Year
  Sex: Female
  Weight: 61.2356 kg

DRUGS (2)
  1. BUPROPION HCL [Suspect]
     Indication: DEPRESSION
     Dosage: 300MG 1 PER DAY PO
     Route: 048
     Dates: start: 20081111, end: 20081111
  2. WELLBUTRIN [Suspect]

REACTIONS (8)
  - AGITATION [None]
  - CHEST DISCOMFORT [None]
  - CRYING [None]
  - HYPOAESTHESIA [None]
  - PANIC ATTACK [None]
  - PARAESTHESIA [None]
  - PRODUCT QUALITY ISSUE [None]
  - TREMOR [None]
